FAERS Safety Report 18553340 (Version 1)
Quarter: 2020Q4

REPORT INFORMATION
  Report Type: Spontaneous
  Country: CN (occurrence: CN)
  Receive Date: 20201127
  Receipt Date: 20201127
  Transmission Date: 20210114
  Serious: Yes (Other)
  Sender: FDA-Public Use
  Company Number: CN-SA-2020SA329794

PATIENT

DRUGS (6)
  1. GLUCOSE [Concomitant]
     Active Substance: DEXTROSE
     Dosage: 250 ML, 1X
     Route: 041
     Dates: start: 20201021, end: 20201021
  2. FLUOROURACIL. [Suspect]
     Active Substance: FLUOROURACIL
     Indication: PANCREATIC CARCINOMA
     Dosage: 3600 MG, 1X, PUMP INJECTION
     Dates: start: 20201021, end: 20201021
  3. GLUCOSE [Concomitant]
     Active Substance: DEXTROSE
     Dosage: 500 ML, 1X
     Route: 041
     Dates: start: 20201021, end: 20201021
  4. ELOXATIN [Suspect]
     Active Substance: OXALIPLATIN
     Indication: PANCREATIC CARCINOMA
     Dosage: 130 MG, 1X
     Route: 041
     Dates: start: 20201021, end: 20201021
  5. IRINOTECAN HYDROCHLORIDE. [Suspect]
     Active Substance: IRINOTECAN HYDROCHLORIDE
     Indication: PANCREATIC CARCINOMA
     Dosage: 230 MG, 1X
     Route: 041
     Dates: start: 20201021, end: 20201021
  6. GLUCOSE [Concomitant]
     Active Substance: DEXTROSE
     Dosage: 233 ML, 1X, ROUTE: PUMP INJECTION
     Dates: start: 20201021, end: 20201021

REACTIONS (2)
  - White blood cell count decreased [Recovering/Resolving]
  - Neutrophil count decreased [Recovering/Resolving]

NARRATIVE: CASE EVENT DATE: 20201027
